FAERS Safety Report 5086936-X (Version None)
Quarter: 2006Q3

REPORT INFORMATION
  Report Type: 
  Country: None (occurrence: None)
  Receive Date: 20060821
  Receipt Date: 20060804
  Transmission Date: 20061208
  Serious: Yes (Hospitalization, Other)
  Sender: FDA-Public Use
  Company Number: 2006AL002185

PATIENT
  Age: 66 Year
  Sex: Female

DRUGS (10)
  1. IBUPROFEN [Suspect]
     Indication: PAIN
     Dosage: 400 MG; TID; PO
     Route: 048
     Dates: end: 20060515
  2. ASPIRIN [Concomitant]
  3. ADCAL-D3 [Concomitant]
  4. ESOMEPRAZOLE MAGNESIUM [Concomitant]
  5. FERROUS SULFATE TAB [Concomitant]
  6. FUROSEMIDE [Concomitant]
  7. LEVOTHYROXINE SODIUM [Concomitant]
  8. PAROXETINE HCL [Concomitant]
  9. QUININE SULFATE [Concomitant]
  10. THIAMINE [Concomitant]

REACTIONS (1)
  - RECTAL HAEMORRHAGE [None]
